APPROVED DRUG PRODUCT: AMINOSYN II 3.5% M IN DEXTROSE 5% IN PLASTIC CONTAINER
Active Ingredient: AMINO ACIDS; DEXTROSE; MAGNESIUM CHLORIDE; POTASSIUM CHLORIDE; SODIUM CHLORIDE; SODIUM PHOSPHATE, DIBASIC, HEPTAHYDRATE
Strength: 3.5%;5GM/100ML;30MG/100ML;97MG/100ML;120MG/100ML;49.3MG/100ML
Dosage Form/Route: INJECTABLE;INJECTION
Application: N019712 | Product #001
Applicant: ABBOTT LABORATORIES HOSP PRODUCTS DIV
Approved: Sep 8, 1988 | RLD: No | RS: No | Type: DISCN